FAERS Safety Report 9374571 (Version 1)
Quarter: 2013Q2

REPORT INFORMATION
  Report Type: Spontaneous
  Country: JP (occurrence: None)
  Receive Date: 20130624
  Receipt Date: 20130624
  Transmission Date: 20140414
  Serious: Yes (Hospitalization)
  Sender: FDA-Public Use
  Company Number: NSR_01161_2013

PATIENT
  Age: 81 Year
  Sex: Male

DRUGS (1)
  1. ALLOPURINOL [Suspect]
     Indication: HYPERURICAEMIA

REACTIONS (4)
  - Drug reaction with eosinophilia and systemic symptoms [None]
  - Cytomegalovirus gastroenteritis [None]
  - Gastrointestinal haemorrhage [None]
  - Ulcer [None]
